FAERS Safety Report 13442025 (Version 1)
Quarter: 2017Q2

REPORT INFORMATION
  Report Type: Other
  Country: AT (occurrence: AT)
  Receive Date: 20170414
  Receipt Date: 20170414
  Transmission Date: 20170830
  Serious: Yes (Death)
  Sender: FDA-Public Use
  Company Number: AT-AJANTA PHARMA USA INC.-1065377

PATIENT

DRUGS (2)
  1. RISPERIDONE. [Suspect]
     Active Substance: RISPERIDONE
     Indication: PRODUCT USED FOR UNKNOWN INDICATION
  2. PIPAMPERONE [Suspect]
     Active Substance: PIPAMPERONE

REACTIONS (1)
  - Embolism venous [Fatal]

NARRATIVE: CASE EVENT DATE: 20170112
